FAERS Safety Report 14980494 (Version 1)
Quarter: 2018Q2

REPORT INFORMATION
  Report Type: Spontaneous
  Country: US (occurrence: US)
  Receive Date: 20180606
  Receipt Date: 20180606
  Transmission Date: 20180711
  Serious: No
  Sender: FDA-Public Use
  Company Number: US-PFIZER INC-2018226907

PATIENT
  Age: 3 Month
  Sex: Male
  Weight: 3.6 kg

DRUGS (4)
  1. GENOTROPIN MQ [Suspect]
     Active Substance: SOMATROPIN
     Indication: GROWTH RETARDATION
     Dosage: 2.5ML EVERY OTHER DAY AND 1.3ML THE OTHER DAYS
     Dates: start: 2018
  2. HYDROCORTISONE. [Concomitant]
     Active Substance: HYDROCORTISONE
     Indication: HYPOPITUITARISM
     Dosage: 0.25 ML, 3X/DAY(0.25ML THREE TIMES A DAY)
     Route: 048
     Dates: start: 2018
  3. IRON [Concomitant]
     Active Substance: IRON
     Dosage: 0.5 ML, 1X/DAY(0.5ML ONCE A DAY)
     Route: 048
     Dates: start: 2018
  4. SYNTHROID [Concomitant]
     Active Substance: LEVOTHYROXINE SODIUM
     Indication: THYROID DISORDER
     Dosage: 1 DF, 1X/DAY(1 CRUSHED TABLET IN A SYRINGE WITH WATER ONCE A DAY)
     Route: 048
     Dates: start: 201804

REACTIONS (1)
  - Injection site haemorrhage [Recovered/Resolved]

NARRATIVE: CASE EVENT DATE: 20180530
